FAERS Safety Report 23334967 (Version 2)
Quarter: 2023Q4

REPORT INFORMATION
  Report Type: Report from Study
  Country: ES (occurrence: ES)
  Receive Date: 20231225
  Receipt Date: 20231226
  Transmission Date: 20240109
  Serious: Yes (Other)
  Sender: FDA-Public Use
  Company Number: ES-ABBVIE-5539943

PATIENT
  Sex: Female

DRUGS (6)
  1. CARBIDOPA\LEVODOPA [Suspect]
     Active Substance: CARBIDOPA\LEVODOPA
     Indication: Parkinson^s disease
     Dosage: FREQUENCY TEXT: 16 HOURS
     Route: 050
     Dates: start: 20140411, end: 20231210
  2. CARBIDOPA\LEVODOPA [Suspect]
     Active Substance: CARBIDOPA\LEVODOPA
     Dosage: FREQUENCY TEXT: 24 HOURS
     Route: 050
     Dates: start: 20231211, end: 20231218
  3. CARBIDOPA\LEVODOPA [Suspect]
     Active Substance: CARBIDOPA\LEVODOPA
     Dosage: FREQUENCY TEXT: 24 HOURS, MORNING DOSE REMOVED
     Route: 050
     Dates: start: 20231218
  4. CARBIDOPA\LEVODOPA [Suspect]
     Active Substance: CARBIDOPA\LEVODOPA
     Route: 050
  5. INBRIJA [Concomitant]
     Active Substance: LEVODOPA
     Indication: Product used for unknown indication
     Dates: start: 2023, end: 2023
  6. HERBALS [Suspect]
     Active Substance: HERBALS
     Indication: Product used for unknown indication
     Route: 065
     Dates: start: 20231210

REACTIONS (14)
  - Dyspnoea [Not Recovered/Not Resolved]
  - Mobility decreased [Unknown]
  - Musculoskeletal stiffness [Recovering/Resolving]
  - Insomnia [Recovered/Resolved]
  - Stoma site hypergranulation [Unknown]
  - Device issue [Unknown]
  - Tremor [Not Recovered/Not Resolved]
  - Inappropriate schedule of product administration [Unknown]
  - Swelling [Not Recovered/Not Resolved]
  - Therapeutic product effect incomplete [Unknown]
  - Product dose omission issue [Unknown]
  - Musculoskeletal stiffness [Unknown]
  - Musculoskeletal stiffness [Not Recovered/Not Resolved]
  - Therapeutic product effect delayed [Not Recovered/Not Resolved]

NARRATIVE: CASE EVENT DATE: 20230101
